FAERS Safety Report 15806085 (Version 1)
Quarter: 2019Q1

REPORT INFORMATION
  Report Type: Spontaneous
  Country: US (occurrence: US)
  Receive Date: 20190103
  Receipt Date: 20190103
  Transmission Date: 20190417
  Serious: Yes (Hospitalization)
  Sender: FDA-Public Use
  Company Number: None

PATIENT

DRUGS (2)
  1. STERILE WATER FOR INJECTION STERILE WATER [Suspect]
     Active Substance: WATER
  2. GLUCAGON GLUCAGON [Suspect]
     Active Substance: GLUCAGON

REACTIONS (3)
  - Product preparation error [None]
  - Wrong product administered [None]
  - Drug ineffective [None]
